FAERS Safety Report 7508442-2 (Version None)
Quarter: 2011Q2

REPORT INFORMATION
  Report Type: 
  Country: None (occurrence: None)
  Receive Date: 20110527
  Receipt Date: 20110523
  Transmission Date: 20111010
  Serious: No
  Sender: FDA-Public Use
  Company Number: US-PFIZER INC-2011111768

PATIENT
  Sex: Female
  Weight: 70.3 kg

DRUGS (2)
  1. SYNTHROID [Concomitant]
     Indication: THYROID DISORDER
     Dosage: 0.75 MG, 1X/DAY
  2. PREMARIN [Suspect]
     Indication: VULVOVAGINAL DRYNESS
     Dosage: 1 G, UNK

REACTIONS (5)
  - JOINT SWELLING [None]
  - WEIGHT INCREASED [None]
  - MUSCULOSKELETAL PAIN [None]
  - ARTHRALGIA [None]
  - BACK PAIN [None]
